FAERS Safety Report 8357701-2 (Version None)
Quarter: 2012Q2

REPORT INFORMATION
  Report Type: 
  Country: None (occurrence: None)
  Receive Date: 20120514
  Receipt Date: 20120509
  Transmission Date: 20120825
  Serious: Yes (Disabling)
  Sender: FDA-Public Use
  Company Number: US-MERCK-1205USA01903

PATIENT
  Sex: Female

DRUGS (2)
  1. RECLAST [Suspect]
     Route: 048
     Dates: start: 20030101, end: 20110701
  2. FOSAMAX [Suspect]
     Route: 048
     Dates: start: 20030101, end: 20110701

REACTIONS (1)
  - FEMUR FRACTURE [None]
